FAERS Safety Report 5900024-9 (Version None)
Quarter: 2008Q3

REPORT INFORMATION
  Report Type: 
  Country: None (occurrence: None)
  Receive Date: 20080925
  Receipt Date: 20080925
  Transmission Date: 20090109
  Serious: Yes (Hospitalization)
  Sender: FDA-Public Use
  Company Number: None

PATIENT
  Sex: Female
  Weight: 74.8435 kg

DRUGS (2)
  1. PREMPRO [Suspect]
     Indication: HORMONE REPLACEMENT THERAPY
     Dosage: 1 DAILY PO
     Route: 048
  2. PREMPRO [Suspect]
     Indication: HYSTERECTOMY
     Dosage: 1 DAILY PO
     Route: 048

REACTIONS (3)
  - EMBOLISM [None]
  - GASTROINTESTINAL ISCHAEMIA [None]
  - GASTROINTESTINAL NECROSIS [None]
